FAERS Safety Report 4907225-7 (Version None)
Quarter: 2006Q1

REPORT INFORMATION
  Report Type: 
  Country: None (occurrence: None)
  Receive Date: 20060207
  Receipt Date: 20060124
  Transmission Date: 20060701
  Serious: No
  Sender: FDA-Public Use
  Company Number: TPA2006A00131

PATIENT
  Age: 44 Year
  Sex: Male
  Weight: 250 kg

DRUGS (6)
  1. ACTOS [Suspect]
     Indication: DIABETES MELLITUS NON-INSULIN-DEPENDENT
     Dosage: 30 MG, 2 IN 1 D, PER ORAL
     Route: 048
     Dates: start: 20060103
  2. GLIPIZIDE [Concomitant]
  3. CLONAZEPAM [Concomitant]
  4. AMBIEN CR (ZOLPIDEM TARTRATE) [Concomitant]
  5. LEXAPRO [Concomitant]
  6. LANTUS (INSULIN GLARGINE) (INJECTION) [Concomitant]

REACTIONS (6)
  - BINGE EATING [None]
  - BLOOD GLUCOSE INCREASED [None]
  - DERMATITIS CONTACT [None]
  - INCORRECT DOSE ADMINISTERED [None]
  - STRESS [None]
  - TREATMENT NONCOMPLIANCE [None]
